FAERS Safety Report 5178119-X (Version None)
Quarter: 2006Q4

REPORT INFORMATION
  Report Type: 
  Country: None (occurrence: None)
  Receive Date: 20061208
  Receipt Date: 20061127
  Transmission Date: 20070319
  Serious: Yes (Death, Hospitalization)
  Sender: FDA-Public Use
  Company Number: US-2006-013439

PATIENT
  Age: 72 Year
  Sex: Male
  Weight: 80 kg

DRUGS (8)
  1. CAMPATH [Suspect]
     Indication: CHRONIC LYMPHOCYTIC LEUKAEMIA
     Dosage: SEE IMAGE
     Route: 058
     Dates: start: 20050606, end: 20050622
  2. CAMPATH [Suspect]
     Indication: CHRONIC LYMPHOCYTIC LEUKAEMIA
     Dosage: SEE IMAGE
     Route: 058
     Dates: start: 20050711, end: 20050711
  3. CAMPATH [Suspect]
     Indication: CHRONIC LYMPHOCYTIC LEUKAEMIA
     Dosage: SEE IMAGE
     Route: 058
     Dates: start: 20051109, end: 20060224
  4. PREDNISONE TAB [Concomitant]
  5. FAMCICLOVIR (FAMCICLOVIR) [Concomitant]
  6. SULFAMETHOXAZOLE + TRIMETHOPRIM [Concomitant]
  7. FOLIC ACID [Concomitant]
  8. VITAMIN B6 [Concomitant]

REACTIONS (22)
  - BONE MARROW FAILURE [None]
  - DIALYSIS [None]
  - DIARRHOEA [None]
  - DRUG TOXICITY [None]
  - ELECTROLYTE IMBALANCE [None]
  - FAILURE TO THRIVE [None]
  - FEBRILE NEUTROPENIA [None]
  - HAEMODIALYSIS [None]
  - HEPATIC FAILURE [None]
  - HYPOTENSION [None]
  - MALIGNANT NEOPLASM PROGRESSION [None]
  - MALNUTRITION [None]
  - MENTAL STATUS CHANGES [None]
  - MULTI-ORGAN FAILURE [None]
  - OXYGEN SATURATION DECREASED [None]
  - PANCYTOPENIA [None]
  - PLEURAL EFFUSION [None]
  - PORTAL HYPERTENSION [None]
  - RENAL FAILURE ACUTE [None]
  - RENAL HYPERTENSION [None]
  - SEPSIS [None]
  - URINARY TRACT INFECTION [None]
